FAERS Safety Report 23894139 (Version 1)
Quarter: 2024Q2

REPORT INFORMATION
  Report Type: Spontaneous
  Country: US (occurrence: None)
  Receive Date: 20240524
  Receipt Date: 20240524
  Transmission Date: 20240716
  Serious: No
  Sender: FDA-Public Use
  Company Number: US-ROCHE-3523115

PATIENT
  Sex: Female

DRUGS (6)
  1. OCREVUS [Suspect]
     Active Substance: OCRELIZUMAB
     Indication: Multiple sclerosis
     Dosage: RECENTLY RECEIVED A DOSE ON 04/MAR/2024
     Route: 042
     Dates: start: 20230828
  2. BACLOFEN [Concomitant]
     Active Substance: BACLOFEN
     Indication: Muscle spasms
  3. ADDERALL [Concomitant]
     Active Substance: AMPHETAMINE ASPARTATE\AMPHETAMINE SULFATE\DEXTROAMPHETAMINE SACCHARATE\DEXTROAMPHETAMINE SULFATE
  4. GABAPENTIN [Concomitant]
     Active Substance: GABAPENTIN
  5. ATIVAN [Concomitant]
     Active Substance: LORAZEPAM
  6. VENLAFAXINE [Concomitant]
     Active Substance: VENLAFAXINE HYDROCHLORIDE

REACTIONS (2)
  - Oropharyngeal pain [Unknown]
  - Throat tightness [Unknown]

NARRATIVE: CASE EVENT DATE: 20230828
